FAERS Safety Report 6832588-5 (Version None)
Quarter: 2010Q3

REPORT INFORMATION
  Report Type: 
  Country: None (occurrence: None)
  Receive Date: 20100707
  Receipt Date: 20100622
  Transmission Date: 20110219
  Serious: Yes (Death)
  Sender: FDA-Public Use
  Company Number: 1000014826

PATIENT
  Age: 41 Year
  Sex: Female

DRUGS (6)
  1. CITALOPRAM HYDROBROMIDE [Suspect]
  2. TRAMADOL [Suspect]
  3. NORDIAZEPAM [Concomitant]
  4. IBUPROFEN [Concomitant]
  5. DIAZEPAM [Concomitant]
  6. CODEINE [Concomitant]

REACTIONS (5)
  - BRAIN OEDEMA [None]
  - DRUG TOXICITY [None]
  - PULMONARY OEDEMA [None]
  - SELF-MEDICATION [None]
  - SEROTONIN SYNDROME [None]
